FAERS Safety Report 16062433 (Version 1)
Quarter: 2019Q1

REPORT INFORMATION
  Report Type: Spontaneous
  Country: US (occurrence: US)
  Receive Date: 20190312
  Receipt Date: 20190312
  Transmission Date: 20190418
  Serious: Yes (Other)
  Sender: FDA-Public Use
  Company Number: US-APOTEX-2019AP009316

PATIENT
  Sex: Male

DRUGS (1)
  1. PAXIL [Suspect]
     Active Substance: PAROXETINE HYDROCHLORIDE
     Indication: EDUCATIONAL PROBLEM
     Dosage: 5 MG, QD (SPLIT TABLET AT NIGHT)
     Route: 065
     Dates: start: 201805

REACTIONS (3)
  - Educational problem [Unknown]
  - Feeling abnormal [Unknown]
  - Suicidal ideation [Unknown]
